FAERS Safety Report 6657172-8 (Version None)
Quarter: 2010Q1

REPORT INFORMATION
  Report Type: 
  Country: None (occurrence: None)
  Receive Date: 20100330
  Receipt Date: 20100301
  Transmission Date: 20100710
  Serious: No
  Sender: FDA-Public Use
  Company Number: US-JNJFOC-20100300638

PATIENT
  Age: 23 Year
  Sex: Male
  Weight: 86.18 kg

DRUGS (1)
  1. INVEGA SUSTENNA [Suspect]
     Indication: SCHIZOPHRENIA
     Route: 030

REACTIONS (2)
  - DEVICE LEAKAGE [None]
  - INCORRECT DOSE ADMINISTERED [None]
